FAERS Safety Report 19865298 (Version 1)
Quarter: 2021Q3

REPORT INFORMATION
  Report Type: Spontaneous
  Country: US (occurrence: US)
  Receive Date: 20210921
  Receipt Date: 20210921
  Transmission Date: 20211014
  Serious: Yes (Disabling)
  Sender: FDA-Public Use
  Company Number: None

PATIENT
  Age: 66 Year
  Sex: Male
  Weight: 115.2 kg

DRUGS (19)
  1. CARDEDILOL [Concomitant]
     Active Substance: CARVEDILOL
  2. ZOLPIDEM [Concomitant]
     Active Substance: ZOLPIDEM TARTRATE
  3. REPATHA [Suspect]
     Active Substance: EVOLOCUMAB
     Indication: TYPE IIA HYPERLIPIDAEMIA
     Dosage: ?OTHER FREQUENCY:EVERY 2 WEEKS;?OTHER ROUTE:SUBCUTANEOUS INJECTION?
     Route: 058
     Dates: start: 20210308, end: 20210726
  4. PLACID [Concomitant]
  5. FUROSEMIDE. [Concomitant]
     Active Substance: FUROSEMIDE
  6. BABY ASA [Concomitant]
     Active Substance: ASPIRIN
  7. FLEXERIL [Concomitant]
     Active Substance: CYCLOBENZAPRINE HYDROCHLORIDE
  8. VITAMINS [Concomitant]
     Active Substance: VITAMINS
  9. BENADRYL [Concomitant]
     Active Substance: DIPHENHYDRAMINE HYDROCHLORIDE
  10. FISH OIL [Concomitant]
     Active Substance: FISH OIL
  11. RAMIPRIL. [Concomitant]
     Active Substance: RAMIPRIL
  12. GABAPENTIN. [Concomitant]
     Active Substance: GABAPENTIN
  13. MAGNESIUM [Concomitant]
     Active Substance: MAGNESIUM
  14. TYLENOL [Concomitant]
     Active Substance: ACETAMINOPHEN
  15. TAMULOSIN [Concomitant]
     Active Substance: TAMSULOSIN
  16. OMEPRAZOLE. [Concomitant]
     Active Substance: OMEPRAZOLE
  17. ACYCLOVIR. [Concomitant]
     Active Substance: ACYCLOVIR
  18. GAMMA GLOBULIN [Concomitant]
     Active Substance: IMMUNE GLOBULIN NOS
  19. IBUPROFEN. [Concomitant]
     Active Substance: IBUPROFEN

REACTIONS (12)
  - Hyperhidrosis [None]
  - Back pain [None]
  - Pain [None]
  - Dyspnoea [None]
  - Red blood cell sedimentation rate increased [None]
  - Chest pain [None]
  - Myalgia [None]
  - Coordination abnormal [None]
  - Blood creatine phosphokinase [None]
  - Asthenia [None]
  - Limb discomfort [None]
  - Gait disturbance [None]

NARRATIVE: CASE EVENT DATE: 20210701
